FAERS Safety Report 4891191-7 (Version None)
Quarter: 2006Q1

REPORT INFORMATION
  Report Type: 
  Country: None (occurrence: None)
  Receive Date: 20060125
  Receipt Date: 20051206
  Transmission Date: 20060701
  Serious: Yes (Disabling)
  Sender: FDA-Public Use
  Company Number: JP-JPN-A20052985

PATIENT
  Age: 26 Year
  Sex: Female
  Weight: 45 kg

DRUGS (13)
  1. PAXIL [Suspect]
     Indication: SOMATOFORM DISORDER
     Dosage: 20MG PER DAY
     Route: 048
     Dates: end: 20051118
  2. PAXIL [Suspect]
     Route: 048
     Dates: start: 20051121
  3. SEPAZON [Concomitant]
     Dosage: 6MG PER DAY
     Route: 048
  4. MAGNESIUM OXIDE [Concomitant]
     Dosage: 1.5G PER DAY
     Route: 048
  5. VITAMIN A [Concomitant]
     Dosage: 2U PER DAY
     Route: 048
  6. EURODIN [Concomitant]
     Dosage: 4MG PER DAY
     Route: 048
  7. LENDORMIN [Concomitant]
     Dosage: .75MG PER DAY
     Route: 048
  8. PURSENNID [Concomitant]
     Dosage: 48MG PER DAY
     Route: 048
  9. DORAL [Concomitant]
     Dosage: 30MG PER DAY
     Route: 048
  10. VEGETAMIN B [Concomitant]
     Dosage: 1U PER DAY
     Route: 048
  11. LULLAN [Concomitant]
     Dosage: 8MG PER DAY
     Route: 048
  12. LUVOX [Concomitant]
  13. LEXOTAN [Concomitant]
     Route: 048

REACTIONS (6)
  - DIZZINESS [None]
  - DRUG WITHDRAWAL SYNDROME [None]
  - GAIT DISTURBANCE [None]
  - HYPOAESTHESIA ORAL [None]
  - PAIN [None]
  - PARAESTHESIA [None]
